FAERS Safety Report 22221783 (Version 1)
Quarter: 2023Q2

REPORT INFORMATION
  Report Type: Spontaneous
  Country: CN (occurrence: CN)
  Receive Date: 20230418
  Receipt Date: 20230418
  Transmission Date: 20230721
  Serious: Yes (Death, Hospitalization)
  Sender: FDA-Public Use
  Company Number: CN-CHIESI-2023CHF01843

PATIENT
  Age: 31 Year
  Sex: Female

DRUGS (2)
  1. DEFERIPRONE [Suspect]
     Active Substance: DEFERIPRONE
     Indication: Neurodegeneration with brain iron accumulation disorder
     Dosage: UNK
  2. DEFERIPRONE [Suspect]
     Active Substance: DEFERIPRONE
     Indication: Off label use

REACTIONS (5)
  - Pneumonia [Fatal]
  - Mental disorder [Unknown]
  - Motor dysfunction [Unknown]
  - Drug ineffective for unapproved indication [Unknown]
  - Off label use [Unknown]
